FAERS Safety Report 10269738 (Version 1)
Quarter: 2014Q2

REPORT INFORMATION
  Report Type: Spontaneous
  Country: DE (occurrence: None)
  Receive Date: 20140625
  Receipt Date: 20140625
  Transmission Date: 20141212
  Serious: Yes (Other)
  Sender: FDA-Public Use
  Company Number: DE-TORRENT-00002933

PATIENT
  Sex: Female

DRUGS (1)
  1. PRAMIPEXOL NEUMANN [Suspect]
     Indication: RESTLESS LEGS SYNDROME
     Dosage: 1 TABLET IN THE EVENING BETWEEN 18:30 AND 19:30, AND 1 TABLET BEFORE BEDTIME
     Route: 048

REACTIONS (4)
  - Restless legs syndrome [None]
  - Feeling abnormal [None]
  - Trismus [None]
  - Suicidal ideation [None]
